FAERS Safety Report 7132085-6 (Version None)
Quarter: 2010Q4

REPORT INFORMATION
  Report Type: 
  Country: None (occurrence: None)
  Receive Date: 20101202
  Receipt Date: 20101129
  Transmission Date: 20110411
  Serious: Yes (Death)
  Sender: FDA-Public Use
  Company Number: PHHY2010CR80735

PATIENT
  Sex: Female

DRUGS (2)
  1. FORADIL [Suspect]
     Dosage: 12 MCG
  2. MIFLONIDE [Suspect]
     Dosage: UNK

REACTIONS (1)
  - H1N1 INFLUENZA [None]
